FAERS Safety Report 15417303 (Version 1)
Quarter: 2018Q3

REPORT INFORMATION
  Report Type: Other
  Country: US (occurrence: US)
  Receive Date: 20180924
  Receipt Date: 20180924
  Transmission Date: 20181010
  Serious: No
  Sender: FDA-Public Use
  Company Number: US-AUROBINDO-AUR-APU-2017-39466

PATIENT

DRUGS (1)
  1. DEXAMFETAMINE [Suspect]
     Active Substance: DEXTROAMPHETAMINE
     Dosage: UNK
     Route: 065
     Dates: start: 20170720

REACTIONS (5)
  - Drug ineffective [Unknown]
  - Headache [Unknown]
  - Product substitution issue [Unknown]
  - Feeling abnormal [Unknown]
  - Fatigue [Unknown]
